FAERS Safety Report 14662862 (Version 3)
Quarter: 2019Q3

REPORT INFORMATION
  Report Type: Spontaneous
  Country: DE (occurrence: DE)
  Receive Date: 20180321
  Receipt Date: 20190912
  Transmission Date: 20191004
  Serious: Yes (Hospitalization, Other)
  Sender: FDA-Public Use
  Company Number: DE-AUROBINDO-AUR-APL-2018-015544

PATIENT
  Age: 63 Year
  Sex: Male
  Weight: 98 kg

DRUGS (1)
  1. AMIODARONE TABLETS [Suspect]
     Active Substance: AMIODARONE
     Indication: ATRIAL FIBRILLATION
     Dosage: 200 MILLIGRAM, ONCE A DAY
     Route: 065

REACTIONS (6)
  - Photosensitivity reaction [Unknown]
  - Dyspnoea [Unknown]
  - Skin hyperpigmentation [Unknown]
  - Cyanosis [Unknown]
  - Hypertensive crisis [Unknown]
  - Cardiac failure [Unknown]
